FAERS Safety Report 25984139 (Version 1)
Quarter: 2025Q4

REPORT INFORMATION
  Report Type: Spontaneous
  Country: KR (occurrence: KR)
  Receive Date: 20251031
  Receipt Date: 20251031
  Transmission Date: 20260118
  Serious: Yes (Other)
  Sender: AMGEN
  Company Number: KR-AMGEN-KORSP2025214525

PATIENT

DRUGS (3)
  1. EVOLOCUMAB [Suspect]
     Active Substance: EVOLOCUMAB
     Indication: Acute myocardial infarction
     Dosage: 420 MILLIGRAM (SINGLE SUBCUTANEOUS INJECTION)
     Route: 058
  2. ROSUVASTATIN [Concomitant]
     Active Substance: ROSUVASTATIN
     Indication: Acute myocardial infarction
     Dosage: 10 MILLIGRAM
  3. EZETIMIBE [Concomitant]
     Active Substance: EZETIMIBE
     Indication: Acute myocardial infarction
     Dosage: 10 MILLIGRAM

REACTIONS (1)
  - Adverse event [Unknown]
